FAERS Safety Report 14312240 (Version 1)
Quarter: 2017Q4

REPORT INFORMATION
  Report Type: Spontaneous
  Country: DE (occurrence: DE)
  Receive Date: 20171221
  Receipt Date: 20171221
  Transmission Date: 20180321
  Serious: Yes (Life-Threatening, Hospitalization)
  Sender: FDA-Public Use
  Company Number: DE-CIPLA LTD.-2017DE23818

PATIENT

DRUGS (13)
  1. LITHIUM CARBONATE. [Suspect]
     Active Substance: LITHIUM CARBONATE
     Dosage: 900 MG, UNK DOSAGE FORM: UNSPECIFIED, 100-125 MG
     Route: 048
  2. LITHIUM CARBONATE. [Suspect]
     Active Substance: LITHIUM CARBONATE
     Dosage: 450 MG, UNK DOSAGE FORM: UNSPECIFIED, 100-125 MG
     Route: 048
  3. LITHIUM CARBONATE. [Suspect]
     Active Substance: LITHIUM CARBONATE
     Dosage: 900 MG, UNK DOSAGE FORM: UNSPECIFIED, 100-125 MG
     Route: 048
  4. ZOLOFT [Concomitant]
     Active Substance: SERTRALINE HYDROCHLORIDE
     Dosage: UNK, DOSAGE FORM: UNSPECIFIED, 100-125 MG
     Route: 048
  5. LITHIUM CARBONATE. [Suspect]
     Active Substance: LITHIUM CARBONATE
     Indication: BORDERLINE PERSONALITY DISORDER
     Dosage: 675 MG, UNK DOSAGE FORM: UNSPECIFIED, 100-125 MG
     Route: 048
  6. LITHIUM CARBONATE. [Suspect]
     Active Substance: LITHIUM CARBONATE
     Dosage: 450 MG, UNK DOSAGE FORM: UNSPECIFIED, 100-125 MG
     Route: 048
  7. LITHIUM CARBONATE. [Suspect]
     Active Substance: LITHIUM CARBONATE
     Dosage: 675 MG, UNK DOSAGE FORM: UNSPECIFIED, 100-125 MG
     Route: 048
  8. LORAZEPAM. [Concomitant]
     Active Substance: LORAZEPAM
     Dosage: UNK, DOSAGE FORM: UNSPECIFIED, 0.5 TO 3 MG
     Route: 048
  9. RISPERIDONE. [Suspect]
     Active Substance: RISPERIDONE
     Indication: BORDERLINE PERSONALITY DISORDER
     Dosage: 3 MG, UNK, DOSAGE FORM: UNSPECIFIED
     Route: 048
     Dates: end: 20161220
  10. LITHIUM CARBONATE. [Suspect]
     Active Substance: LITHIUM CARBONATE
     Dosage: 225 MG, UNK DOSAGE FORM: UNSPECIFIED, 100-125 MG
     Route: 048
  11. TRUXAL [Concomitant]
     Active Substance: CHLORPROTHIXENE
     Dosage: 140 MG, UNK, DOSAGE FORM: UNSPECIFIED, SINCE MONTHS
     Route: 048
  12. LITHIUM CARBONATE. [Suspect]
     Active Substance: LITHIUM CARBONATE
     Dosage: 1125 MG, UNK DOSAGE FORM: UNSPECIFIED, 100-125 MG
     Route: 048
  13. REMERGIL [Concomitant]
     Active Substance: MIRTAZAPINE
     Dosage: 45 MG, UNK, DOSAGE FORM: UNSPECIFIED, SINCE MONTHS
     Route: 048

REACTIONS (6)
  - Keratosis pilaris [Unknown]
  - Product used for unknown indication [Unknown]
  - Off label use [Unknown]
  - Hospitalisation [Unknown]
  - Angioedema [Recovered/Resolved]
  - Pruritus [Recovered/Resolved]

NARRATIVE: CASE EVENT DATE: 20160904
